FAERS Safety Report 21831667 (Version 12)
Quarter: 2024Q4

REPORT INFORMATION
  Report Type: Spontaneous
  Country: DE (occurrence: DE)
  Receive Date: 20230106
  Receipt Date: 20241230
  Transmission Date: 20250115
  Serious: Yes (Hospitalization, Other)
  Sender: NOVARTIS
  Company Number: DE-002147023-NVSC2022DE301429

PATIENT
  Age: 38 Year
  Sex: Female
  Weight: 57.5 kg

DRUGS (27)
  1. COSENTYX [Suspect]
     Active Substance: SECUKINUMAB
     Indication: Psoriatic arthropathy
     Dosage: 300 MG
     Route: 065
     Dates: start: 201706, end: 201805
  2. SORBITOL [Suspect]
     Active Substance: SORBITOL
     Indication: Product used for unknown indication
     Dosage: UNK
     Route: 065
  3. FRUCTOSE [Suspect]
     Active Substance: FRUCTOSE
     Indication: Product used for unknown indication
     Dosage: UNK
     Route: 065
  4. BUTYLSCOPOLAMINE BROMIDE [Concomitant]
     Active Substance: BUTYLSCOPOLAMINE BROMIDE
     Indication: Product used for unknown indication
     Dosage: UNK, PRN
     Route: 042
     Dates: start: 20170706
  5. PROPOFOL [Concomitant]
     Active Substance: PROPOFOL
     Indication: Product used for unknown indication
     Dosage: UNK
     Route: 042
  6. CELEBREX [Concomitant]
     Active Substance: CELECOXIB
     Indication: Product used for unknown indication
     Dosage: UNK
     Route: 065
  7. IBUPROFEN [Concomitant]
     Active Substance: IBUPROFEN
     Indication: Product used for unknown indication
     Dosage: UNK, PRN
     Route: 065
  8. Dormicum [Concomitant]
     Indication: Product used for unknown indication
     Dosage: UNK (2.5 MG)
     Route: 065
  9. Dormicum [Concomitant]
     Dosage: UNK (1.5 MG)
     Route: 065
  10. MEPERIDINE [Concomitant]
     Active Substance: MEPERIDINE
     Indication: Product used for unknown indication
     Dosage: UNK (UPPER SHORT INFUSION UPPER 30 MIN)
     Route: 065
  11. CIPROFLOXACIN AZU [Concomitant]
     Indication: Urinary tract infection
     Dosage: UNK UNK, QID
     Route: 065
  12. CIPROFLOXACIN AZU [Concomitant]
     Dosage: 500 MG, BID
     Route: 065
  13. PANTOPRAZOLE [Concomitant]
     Active Substance: PANTOPRAZOLE
     Indication: Product used for unknown indication
     Dosage: UNK, QD
     Route: 065
  14. EBASTINE [Concomitant]
     Active Substance: EBASTINE
     Indication: Product used for unknown indication
     Dosage: UNK (1X)
     Route: 065
     Dates: start: 20190505
  15. EBASTINE [Concomitant]
     Active Substance: EBASTINE
     Dosage: 10 MG, QD
     Route: 065
  16. RANITIDINE [Concomitant]
     Active Substance: RANITIDINE
     Indication: Product used for unknown indication
     Dosage: 150 MG, QID
     Route: 065
  17. CHOLECALCIFEROL [Concomitant]
     Active Substance: CHOLECALCIFEROL
     Indication: Product used for unknown indication
     Dosage: UNK (20,000 IE EVERY 2-3 WEEKS)
     Route: 065
  18. Panthenol;Potassium nitrate;Sodium fluoride;Tocopherol;Triclosan;Xylit [Concomitant]
     Indication: Product used for unknown indication
     Dosage: UNK
     Route: 065
  19. CIMETIDINE [Concomitant]
     Active Substance: CIMETIDINE
     Indication: Product used for unknown indication
     Dosage: UNK, QID
     Route: 048
     Dates: start: 20211013
  20. Unacid [Concomitant]
     Indication: Urinary tract infection
     Dosage: UNK (ON 02 MAY)
     Route: 065
  21. METAMIZOLE [Concomitant]
     Active Substance: METAMIZOLE
     Indication: Product used for unknown indication
     Dosage: UNK, PRN
     Route: 065
  22. CHOLECALCIFEROL [Concomitant]
     Active Substance: CHOLECALCIFEROL
     Indication: Product used for unknown indication
     Dosage: UNK, QD (EVERY 14 DAYS)
     Route: 065
  23. CARBOHYDRATES\FATTY ACIDS\MINERALS\PROTEIN\VITAMINS [Concomitant]
     Active Substance: CARBOHYDRATES\FATTY ACIDS\MINERALS\PROTEIN\VITAMINS
     Indication: Product used for unknown indication
     Dosage: UNK (NEUTRAL)
     Route: 065
  24. CURCUMIN [Concomitant]
     Active Substance: CURCUMIN
     Indication: Product used for unknown indication
     Dosage: UNK, TID
     Route: 065
  25. ZINC [Concomitant]
     Active Substance: ZINC
     Indication: Product used for unknown indication
     Dosage: UNK, QD
     Route: 065
  26. PRUCALOPRIDE [Concomitant]
     Active Substance: PRUCALOPRIDE
     Indication: Product used for unknown indication
     Dosage: UNK, QD
     Route: 065
     Dates: start: 20210806
  27. RIFAXIMIN [Concomitant]
     Active Substance: RIFAXIMIN
     Indication: Product used for unknown indication
     Dosage: UNK, TID
     Route: 048
     Dates: start: 20211013, end: 20211023

REACTIONS (51)
  - Vomiting [Unknown]
  - Intestinal perforation [Unknown]
  - Intestinal stenosis [Unknown]
  - Oropharyngeal candidiasis [Unknown]
  - Diverticulitis [Unknown]
  - Anastomotic stenosis [Recovered/Resolved]
  - Large intestinal stenosis [Recovered/Resolved]
  - Megacolon [Unknown]
  - Gastrointestinal motility disorder [Unknown]
  - Post procedural inflammation [Unknown]
  - Proctitis [Unknown]
  - Gastrointestinal inflammation [Unknown]
  - Intestinal obstruction [Unknown]
  - Malnutrition [Unknown]
  - Anastomotic stenosis [Recovered/Resolved]
  - Anastomotic stenosis [Recovered/Resolved]
  - Pelvic adhesions [Unknown]
  - Inflammatory bowel disease [Unknown]
  - Coeliac disease [Unknown]
  - Gastritis haemorrhagic [Unknown]
  - Oesophageal candidiasis [Unknown]
  - Autoimmune thyroiditis [Unknown]
  - Colitis [Unknown]
  - Abdominal pain [Unknown]
  - Chronic fatigue syndrome [Unknown]
  - Hypoglycaemia [Unknown]
  - Fructose intolerance [Unknown]
  - Gastrooesophageal reflux disease [Unknown]
  - Pelvic pain [Unknown]
  - Gastrointestinal hypomotility [Unknown]
  - Abdominal distension [Unknown]
  - Scar [Unknown]
  - Gastritis [Unknown]
  - Gastric cyst [Unknown]
  - Groin pain [Unknown]
  - Iron deficiency [Unknown]
  - Bladder pain [Unknown]
  - Arthralgia [Unknown]
  - Glycosylated haemoglobin decreased [Unknown]
  - Zinc deficiency [Unknown]
  - Drug hypersensitivity [Unknown]
  - Skin disorder [Unknown]
  - Nausea [Unknown]
  - Spinal disorder [Unknown]
  - Hiatus hernia [Unknown]
  - Stoma site oedema [Unknown]
  - Waist circumference increased [Unknown]
  - Lymphadenitis [Unknown]
  - Lymphoid hyperplasia of intestine [Unknown]
  - Pharyngitis [Unknown]
  - Carbohydrate intolerance [Unknown]

NARRATIVE: CASE EVENT DATE: 20171212
